FAERS Safety Report 7498337-5 (Version None)
Quarter: 2011Q2

REPORT INFORMATION
  Report Type: 
  Country: None (occurrence: None)
  Receive Date: 20110524
  Receipt Date: 20081115
  Transmission Date: 20111010
  Serious: Yes (Other)
  Sender: FDA-Public Use
  Company Number: US-BAYER-200838761NA

PATIENT
  Age: 70 Year
  Sex: Male
  Weight: 66 kg

DRUGS (12)
  1. LISINOPRIL [Concomitant]
     Dosage: 20 MG
     Route: 048
  2. FENTANYL [Concomitant]
     Dosage: 30 MCG
     Route: 042
     Dates: start: 20061128
  3. TRASYLOL [Suspect]
     Indication: AORTIC VALVE REPLACEMENT
     Dosage: 1 ML INITIAL TEST DOSE
     Route: 042
     Dates: start: 20061128, end: 20061128
  4. SODIUM BICARBONATE [Concomitant]
  5. HEPARIN [Concomitant]
     Dosage: UNK
     Route: 042
     Dates: start: 20061128
  6. CARVEDILOL [Concomitant]
     Dosage: UNK
     Route: 048
     Dates: start: 20000101
  7. LASIX [Concomitant]
     Dosage: 20 MG
     Route: 042
     Dates: start: 20061128
  8. CALCIUM CHLORIDE [Concomitant]
     Dosage: 500MG
     Route: 042
     Dates: start: 20061128
  9. TRASYLOL [Suspect]
     Dosage: 200ML, CONTINUOUS INFUSION AT 50ML/HOUR.
     Route: 042
     Dates: start: 20061128, end: 20061128
  10. ALBUMIN (HUMAN) [Concomitant]
     Dosage: 100 ML
     Route: 042
     Dates: start: 20061128
  11. LOVASTATIN [Concomitant]
     Dosage: 40 MG
     Route: 048
  12. PROPOFOL [Concomitant]
     Dosage: 100 MG
     Route: 042
     Dates: start: 20061128

REACTIONS (4)
  - RENAL FAILURE [None]
  - INJURY [None]
  - PAIN [None]
  - UNEVALUABLE EVENT [None]
